FAERS Safety Report 5133784-8 (Version None)
Quarter: 2006Q4

REPORT INFORMATION
  Report Type: 
  Country: None (occurrence: None)
  Receive Date: 20061018
  Receipt Date: 20061010
  Transmission Date: 20070319
  Serious: Yes (Hospitalization, Disabling)
  Sender: FDA-Public Use
  Company Number: 2006117995

PATIENT
  Age: 21 Year
  Sex: Female
  Weight: 80 kg

DRUGS (3)
  1. GENOTROPIN [Suspect]
     Indication: HYPOPITUITARISM
     Dosage: 0.8 MG (1 IN 1 D), SUBCUTANEOUS
     Route: 058
     Dates: start: 20040330
  2. RITALIN [Concomitant]
  3. TRILEPTAL [Concomitant]

REACTIONS (6)
  - APATHY [None]
  - DEHYDRATION [None]
  - EPILEPSY [None]
  - FLUID INTAKE REDUCED [None]
  - LOSS OF CONSCIOUSNESS [None]
  - UNRESPONSIVE TO STIMULI [None]
